FAERS Safety Report 19993523 (Version 3)
Quarter: 2021Q4

REPORT INFORMATION
  Report Type: Spontaneous
  Country: US (occurrence: US)
  Receive Date: 20211025
  Receipt Date: 20211029
  Transmission Date: 20220303
  Serious: No
  Sender: FDA-Public Use
  Company Number: US-GLAXOSMITHKLINE-US2021215073

PATIENT
  Age: 73 Year
  Sex: Female

DRUGS (3)
  1. ADVAIR DISKUS [Suspect]
     Active Substance: FLUTICASONE PROPIONATE\SALMETEROL XINAFOATE
     Indication: Asthma
     Dosage: UNK , BID
     Dates: start: 20120101
  2. ADVAIR DISKUS [Suspect]
     Active Substance: FLUTICASONE PROPIONATE\SALMETEROL XINAFOATE
     Dosage: UNK
     Dates: start: 2017, end: 20211018
  3. ALBUTEROL SULFATE [Suspect]
     Active Substance: ALBUTEROL SULFATE
     Indication: Asthma
     Dosage: ONE VIAL EVERY 6 HOURS

REACTIONS (9)
  - COVID-19 [Not Recovered/Not Resolved]
  - Thirst [Unknown]
  - Expired device used [Recovered/Resolved]
  - Prescription drug used without a prescription [Unknown]
  - Illness [Unknown]
  - Asthma [Unknown]
  - Cough [Unknown]
  - Oropharyngeal pain [Unknown]
  - Drug ineffective [Unknown]

NARRATIVE: CASE EVENT DATE: 20200101
